FAERS Safety Report 19748545 (Version 11)
Quarter: 2024Q1

REPORT INFORMATION
  Report Type: Report from Study
  Country: US (occurrence: US)
  Receive Date: 20210825
  Receipt Date: 20240228
  Transmission Date: 20240410
  Serious: Yes (Disabling, Other)
  Sender: FDA-Public Use
  Company Number: US-002147023-NVSC2021US190767

PATIENT
  Sex: Female

DRUGS (2)
  1. KESIMPTA [Suspect]
     Active Substance: OFATUMUMAB
     Indication: Multiple sclerosis
     Dosage: 20 MG (BENEATH THE SKIN)
     Route: 058
     Dates: start: 20210626
  2. KESIMPTA [Suspect]
     Active Substance: OFATUMUMAB
     Dosage: 20 MG, QMO
     Route: 030

REACTIONS (7)
  - Inappropriate schedule of product administration [Unknown]
  - Multiple sclerosis [Unknown]
  - Therapeutic response shortened [Unknown]
  - Gait inability [Unknown]
  - Headache [Unknown]
  - Incorrect route of product administration [Unknown]
  - Malaise [Unknown]
